FAERS Safety Report 6255138-3 (Version None)
Quarter: 2009Q3

REPORT INFORMATION
  Report Type: 
  Country: None (occurrence: None)
  Receive Date: 20090702
  Receipt Date: 20090622
  Transmission Date: 20100115
  Serious: Yes (Other)
  Sender: FDA-Public Use
  Company Number: PHHY2009AU09922

PATIENT
  Sex: Male

DRUGS (1)
  1. CLOZARIL [Suspect]
     Dosage: 225 MG/DAY
     Route: 048
     Dates: start: 20090218, end: 20090306

REACTIONS (3)
  - CHEST PAIN [None]
  - MYOCARDITIS [None]
  - TACHYCARDIA [None]
